FAERS Safety Report 11983659 (Version 1)
Quarter: 2016Q1

REPORT INFORMATION
  Report Type: Spontaneous
  Country: US (occurrence: US)
  Receive Date: 20160201
  Receipt Date: 20160201
  Transmission Date: 20160526
  Serious: Yes (Death)
  Sender: FDA-Public Use
  Company Number: US-LPDUSPRD-20160076

PATIENT
  Age: 81 Year
  Sex: Female

DRUGS (10)
  1. XANAX [Concomitant]
     Active Substance: ALPRAZOLAM
     Dosage: AS NEEDED
     Route: 048
  2. COREG [Concomitant]
     Active Substance: CARVEDILOL
     Dosage: 6.2 MG DAILY
     Route: 048
  3. MOM [Concomitant]
     Active Substance: MAGNESIUM HYDROXIDE
     Dosage: AS NEEDED
     Route: 048
  4. NITROGLYCERIN TABLETS [Concomitant]
     Dosage: PRN (PATIENT TAKING DAILY)
     Route: 048
  5. LISINOPRIL. [Concomitant]
     Active Substance: LISINOPRIL
     Dosage: 5 MG TABLET DAILY
     Route: 048
  6. FUSION PLUS IRON [Concomitant]
     Dosage: 130 MG DAILY FOR 90 DAYS
     Route: 048
     Dates: start: 20151013
  7. CITALOPRAM [Concomitant]
     Active Substance: CITALOPRAM HYDROBROMIDE
     Dosage: 10 MG DAILY
     Route: 048
  8. SYMBICORT [Concomitant]
     Active Substance: BUDESONIDE\FORMOTEROL FUMARATE DIHYDRATE
     Dosage: 160/4.5 - 2 PUFFS TWICE A DAY
     Route: 055
  9. LASIX [Concomitant]
     Active Substance: FUROSEMIDE
     Dosage: 40 MG TABLET DAILY
     Route: 048
  10. INJECTAFER [Suspect]
     Active Substance: FERRIC CARBOXYMALTOSE
     Dosage: 750 MG IN 100 ML NSS
     Route: 042
     Dates: start: 20160107, end: 20160107

REACTIONS (6)
  - Nausea [Unknown]
  - Asthenia [Unknown]
  - Dyspnoea [Unknown]
  - Malaise [Unknown]
  - Retching [Unknown]
  - Death [Fatal]

NARRATIVE: CASE EVENT DATE: 20160107
